FAERS Safety Report 6536806-2 (Version None)
Quarter: 2010Q1

REPORT INFORMATION
  Report Type: 
  Country: None (occurrence: None)
  Receive Date: 20100113
  Receipt Date: 20100107
  Transmission Date: 20100710
  Serious: Yes (Other)
  Sender: FDA-Public Use
  Company Number: US-AMGEN-QUU360028

PATIENT
  Sex: Female
  Weight: 57.7 kg

DRUGS (13)
  1. ENBREL [Suspect]
     Indication: RHEUMATOID ARTHRITIS
     Route: 058
     Dates: start: 20040927, end: 20090806
  2. ENBREL [Suspect]
     Indication: SCLERODERMA
  3. METHOTREXATE [Concomitant]
     Route: 048
  4. BONIVA [Concomitant]
  5. CELEBREX [Concomitant]
  6. METHOTREXATE [Concomitant]
  7. FOLIC ACID [Concomitant]
  8. NEXIUM [Concomitant]
  9. ZALEPLON [Concomitant]
  10. CHLORHEXIDINE GLUCONATE [Concomitant]
  11. CALTRATE [Concomitant]
  12. GLUCOSAMINE [Concomitant]
  13. LOVAZA [Concomitant]

REACTIONS (8)
  - GINGIVAL PAIN [None]
  - IMPAIRED HEALING [None]
  - LOOSE TOOTH [None]
  - OEDEMA PERIPHERAL [None]
  - TOOTH ABSCESS [None]
  - TOOTH DISORDER [None]
  - VASCULAR INJURY [None]
  - VASCULITIS [None]
